FAERS Safety Report 8837826 (Version 1)
Quarter: 2012Q4

REPORT INFORMATION
  Report Type: 
  Country: DK (occurrence: DK)
  Receive Date: 20121012
  Receipt Date: 20121012
  Transmission Date: 20130627
  Serious: Yes (Hospitalization)
  Sender: FDA-Public Use
  Company Number: DK-MYLANLABS-2012S1020305

PATIENT
  Age: 42 Year
  Sex: Female

DRUGS (7)
  1. OCTOCAINE [Suspect]
     Indication: EPIDURAL TEST DOSE
     Dosage: lidocaine 20 mg/mL, epinephrine 5 microg/mL
     Route: 008
  2. ROPIVACAINE [Suspect]
     Indication: PERIOPERATIVE ANALGESIA
     Dosage: 5 mg/mL in 13mL total volume
     Route: 008
  3. BUPIVACAINE [Suspect]
     Indication: POSTOPERATIVE ANALGESIA
     Dosage: 1 mg/mL administered at 8-10 mL/h
     Route: 008
  4. FENTANYL [Suspect]
     Indication: POSTOPERATIVE ANALGESIA
     Dosage: 2 microg/mL at 8-10 mL/h
     Route: 008
  5. EPINEPHRINE [Suspect]
     Indication: POSTOPERATIVE ANALGESIA
     Dosage: 2 microg/mL at 8-10 mL/h
     Route: 008
  6. MORPHINE [Suspect]
     Indication: ABDOMINAL PAIN UPPER
     Dosage: then 2mg with epidural analgesia
     Route: 042
  7. OXYCODONE [Concomitant]
     Indication: ABDOMINAL PAIN UPPER
     Route: 065

REACTIONS (3)
  - Hyperaesthesia [Recovered/Resolved]
  - Allodynia [Recovered/Resolved]
  - Pruritus [None]
